FAERS Safety Report 19545261 (Version 2)
Quarter: 2021Q3

REPORT INFORMATION
  Report Type: Spontaneous
  Country: US (occurrence: US)
  Receive Date: 20210714
  Receipt Date: 20210728
  Transmission Date: 20211014
  Serious: No
  Sender: FDA-Public Use
  Company Number: US-PFIZER INC-2021711894

PATIENT

DRUGS (1)
  1. GENOTROPIN [Suspect]
     Active Substance: SOMATROPIN
     Dosage: UNK
     Dates: start: 2019

REACTIONS (4)
  - Device power source issue [Unknown]
  - Device information output issue [Unknown]
  - Device issue [Unknown]
  - Drug dose omission by device [Unknown]
